FAERS Safety Report 9037920 (Version 2)
Quarter: 2013Q1

REPORT INFORMATION
  Report Type: Spontaneous
  Country: US (occurrence: US)
  Receive Date: 20130129
  Receipt Date: 20130206
  Transmission Date: 20140127
  Serious: Yes (Death, Life-Threatening, Hospitalization, Other)
  Sender: FDA-Public Use
  Company Number: US-009507513-1301USA009785

PATIENT
  Age: 87 Year
  Sex: Male

DRUGS (2)
  1. LISINOPRIL [Suspect]
     Indication: HYPERTENSION
     Dosage: UNK
     Route: 048
     Dates: start: 201210, end: 20121227
  2. LISINOPRIL [Suspect]
     Dosage: UNK
     Route: 048
     Dates: start: 20121229, end: 20121229

REACTIONS (10)
  - Death [Fatal]
  - Hydrocele operation [Unknown]
  - Renal failure [Unknown]
  - Haemoptysis [Unknown]
  - Oropharyngeal pain [Unknown]
  - Tracheostomy [Unknown]
  - Neck pain [Unknown]
  - Swollen tongue [Recovered/Resolved]
  - Lip swelling [Recovered/Resolved]
  - Swelling face [Recovered/Resolved]
